FAERS Safety Report 11231113 (Version 6)
Quarter: 2015Q4

REPORT INFORMATION
  Report Type: Report from Study
  Country: US (occurrence: US)
  Receive Date: 20150701
  Receipt Date: 20151113
  Transmission Date: 20160304
  Serious: Yes (Hospitalization, Other)
  Sender: FDA-Public Use
  Company Number: US-ROCHE-1599568

PATIENT
  Age: 60 Year
  Sex: Female
  Weight: 145.28 kg

DRUGS (23)
  1. PLAVIX [Concomitant]
     Active Substance: CLOPIDOGREL BISULFATE
     Route: 048
  2. MORPHINE SR [Concomitant]
     Active Substance: MORPHINE
     Route: 065
  3. LIDODERM [Concomitant]
     Active Substance: LIDOCAINE
     Dosage: 1 PATCH ONCE DAILY
     Route: 065
  4. PROAIR HFA [Concomitant]
     Active Substance: ALBUTEROL SULFATE
     Dosage: 2 PUFFS Q6H, AS NEEDED
     Route: 055
  5. BENTYL [Concomitant]
     Active Substance: DICYCLOMINE HYDROCHLORIDE
     Route: 065
  6. DEMADEX [Concomitant]
     Active Substance: TORSEMIDE
     Dosage: 2 TABLETS DAILY
     Route: 048
  7. RANIBIZUMAB [Suspect]
     Active Substance: RANIBIZUMAB
     Indication: DIABETIC RETINAL OEDEMA
     Route: 050
     Dates: start: 20141106, end: 20150519
  8. MAXITROL [Concomitant]
     Active Substance: DEXAMETHASONE\NEOMYCIN SULFATE\POLYMYXIN B SULFATE
     Dosage: 3.5 MG/G 10000 UNIT
     Route: 047
  9. HUMALOG [Concomitant]
     Active Substance: INSULIN LISPRO
     Dosage: 100UNIT/ML
     Route: 065
  10. NITROGLYCERIN. [Concomitant]
     Active Substance: NITROGLYCERIN
  11. ARICEPT [Concomitant]
     Active Substance: DONEPEZIL HYDROCHLORIDE
     Dosage: AT BEDTIME
     Route: 065
  12. OXYCODONE [Concomitant]
     Active Substance: OXYCODONE
     Dosage: AS REQUIRED
     Route: 048
  13. CRESTOR [Concomitant]
     Active Substance: ROSUVASTATIN CALCIUM
     Route: 048
  14. LISINOPRIL. [Concomitant]
     Active Substance: LISINOPRIL
     Route: 048
  15. MAALOX (ALUMINUM HYDROXIDE/MAGNESIUM HYDROXIDE) [Concomitant]
     Dosage: 200-200-20 MG/5ML, AS REQUIRED
     Route: 048
  16. ASPIRIN. [Concomitant]
     Active Substance: ASPIRIN
     Route: 065
  17. RANIBIZUMAB [Suspect]
     Active Substance: RANIBIZUMAB
     Route: 050
     Dates: start: 20150917
  18. CEFALEXINE [Concomitant]
     Active Substance: CEPHALEXIN
     Route: 065
  19. COLACE [Concomitant]
     Active Substance: DOCUSATE SODIUM
     Route: 048
  20. PROCTOSOL HC [Concomitant]
     Dosage: RECTAL CREAM
     Route: 054
  21. LASIX [Concomitant]
     Active Substance: FUROSEMIDE
     Route: 065
  22. GLARGINE [Concomitant]
     Dosage: 30 UNITS, QAM AND QHS
     Route: 058
  23. LYRICA [Concomitant]
     Active Substance: PREGABALIN
     Route: 065

REACTIONS (13)
  - Angina unstable [Unknown]
  - Syncope [Unknown]
  - Hyperglycaemia [Unknown]
  - Back pain [Unknown]
  - Cardiac failure congestive [Unknown]
  - Hyponatraemia [Recovered/Resolved]
  - Asthenia [Unknown]
  - Oedema peripheral [Unknown]
  - Chest pain [Recovered/Resolved]
  - Dyspnoea [Recovered/Resolved]
  - Diabetic foot [Recovered/Resolved]
  - Cellulitis [Unknown]
  - Mental status changes [Unknown]

NARRATIVE: CASE EVENT DATE: 20141213
